FAERS Safety Report 17955241 (Version 1)
Quarter: 2020Q2

REPORT INFORMATION
  Report Type: Spontaneous
  Country: US (occurrence: US)
  Receive Date: 20200626
  Receipt Date: 20200626
  Transmission Date: 20200714
  Serious: Yes (Hospitalization, Disabling)
  Sender: FDA-Public Use
  Company Number: None

PATIENT
  Age: 25 Year
  Sex: Female
  Weight: 63 kg

DRUGS (5)
  1. WOMEN^S ONE A DAY [Concomitant]
     Active Substance: VITAMINS
  2. KENALOG [Suspect]
     Active Substance: TRIAMCINOLONE ACETONIDE
     Indication: INFRAPATELLAR FAT PAD INFLAMMATION
     Dosage: ?          QUANTITY:1 INJECTION(S);OTHER ROUTE:INJECTED INTO THE JOINT SPACE?
     Dates: start: 20200619
  3. KENALOG [Suspect]
     Active Substance: TRIAMCINOLONE ACETONIDE
     Indication: BURSITIS
     Dosage: ?          QUANTITY:1 INJECTION(S);OTHER ROUTE:INJECTED INTO THE JOINT SPACE?
     Dates: start: 20200619
  4. PROBIOTICS [Concomitant]
     Active Substance: PROBIOTICS NOS
  5. CRANBERRY SUPPLEMENT [Concomitant]

REACTIONS (16)
  - Hot flush [None]
  - Menorrhagia [None]
  - Palpitations [None]
  - Diarrhoea [None]
  - Initial insomnia [None]
  - Panic attack [None]
  - Nausea [None]
  - Dizziness [None]
  - Hormone level abnormal [None]
  - Pain [None]
  - Panic reaction [None]
  - Menstruation irregular [None]
  - Chest pain [None]
  - Photopsia [None]
  - Stress [None]
  - Paranoia [None]

NARRATIVE: CASE EVENT DATE: 20200619
